FAERS Safety Report 6501256-1 (Version None)
Quarter: 2009Q4

REPORT INFORMATION
  Report Type: 
  Country: None (occurrence: None)
  Receive Date: 20091216
  Receipt Date: 20091130
  Transmission Date: 20100525
  Serious: No
  Sender: FDA-Public Use
  Company Number: A0814305A

PATIENT
  Age: 66 Year
  Sex: Female

DRUGS (1)
  1. COMMIT [Suspect]
     Dates: start: 20091027

REACTIONS (10)
  - DRUG ADMINISTRATION ERROR [None]
  - DYSGEUSIA [None]
  - ERUCTATION [None]
  - FOREIGN BODY [None]
  - HYPERSENSITIVITY [None]
  - MOUTH ULCERATION [None]
  - ORAL MUCOSAL EXFOLIATION [None]
  - OROPHARYNGEAL PAIN [None]
  - SALIVARY HYPERSECRETION [None]
  - SENSATION OF FOREIGN BODY [None]
